FAERS Safety Report 8103752-2 (Version None)
Quarter: 2012Q1

REPORT INFORMATION
  Report Type: 
  Country: None (occurrence: None)
  Receive Date: 20120201
  Receipt Date: 20120118
  Transmission Date: 20120608
  Serious: Yes (Hospitalization)
  Sender: FDA-Public Use
  Company Number: GB-CELGENEUS-167-21880-11103172

PATIENT
  Sex: Female
  Weight: 62.2 kg

DRUGS (13)
  1. REVLIMID [Suspect]
     Dosage: 15 MILLIGRAM
     Route: 048
     Dates: start: 20101202, end: 20101204
  2. DEXAMETHASONE [Suspect]
     Indication: MULTIPLE MYELOMA
     Route: 048
     Dates: start: 20100303, end: 20100817
  3. MAGNESIUM OXIDE [Concomitant]
     Route: 048
     Dates: start: 20101208, end: 20101209
  4. REVLIMID [Suspect]
     Indication: MULTIPLE MYELOMA
     Dosage: 15 MILLIGRAM
     Route: 048
     Dates: start: 20100303, end: 20101201
  5. DEXAMETHASONE [Suspect]
     Route: 048
     Dates: start: 20100818, end: 20101012
  6. ZOLEDRONIC ACID [Suspect]
     Indication: MULTIPLE MYELOMA
     Dosage: .1 MILLIGRAM
     Route: 041
     Dates: start: 20100303
  7. OMEPRAZOLE [Concomitant]
     Indication: ULCER
     Dosage: 40 MILLIGRAM
     Route: 048
     Dates: start: 20101205, end: 20101219
  8. DEXAMETHASONE [Suspect]
     Route: 048
     Dates: start: 20101013, end: 20101201
  9. DEXAMETHASONE [Suspect]
     Route: 048
     Dates: start: 20110126
  10. WARFARIN SODIUM [Suspect]
     Indication: ANTICOAGULANT THERAPY
     Route: 065
  11. SODIUM BICARBONATE [Concomitant]
     Route: 048
     Dates: start: 20101207, end: 20101213
  12. CALCEOS [Concomitant]
     Indication: VITAMIN SUPPLEMENTATION
     Route: 048
     Dates: start: 20101205, end: 20101219
  13. REVLIMID [Suspect]
     Dosage: 7.5 MILLIGRAM
     Route: 048
     Dates: start: 20110126

REACTIONS (5)
  - HAEMATURIA [None]
  - SEPSIS [None]
  - RENAL FAILURE ACUTE [None]
  - PYREXIA [None]
  - INTERNATIONAL NORMALISED RATIO INCREASED [None]
